FAERS Safety Report 13179024 (Version 1)
Quarter: 2017Q1

REPORT INFORMATION
  Report Type: Spontaneous
  Country: US (occurrence: US)
  Receive Date: 20170202
  Receipt Date: 20170202
  Transmission Date: 20170428
  Serious: Yes (Hospitalization)
  Sender: FDA-Public Use
  Company Number: None

PATIENT
  Age: 33 Year
  Sex: Female
  Weight: 62.1 kg

DRUGS (7)
  1. VITAMIN B COMPLEX [Concomitant]
     Active Substance: CYANOCOBALAMIN\DEXPANTHENOL\NIACINAMIDE\PYRIDOXINE HYDROCHLORIDE\RIBOFLAVIN 5^-PHOSPHATE SODIUM\THIAMINE HYDROCHLORIDE\VITAMIN B COMPLEX
  2. MAALOX ANTACID [Concomitant]
     Active Substance: ALUMINUM HYDROXIDE\DIMETHICONE\MAGNESIUM HYDROXIDE
  3. VITAMIN D3 [Concomitant]
     Active Substance: CHOLECALCIFEROL
  4. PEMBROLIZUMAB 200MG MERCK RESEARCH LAB [Suspect]
     Active Substance: PEMBROLIZUMAB
     Indication: METASTASES TO MENINGES
     Route: 042
     Dates: start: 20170119
  5. KLONOPIN [Concomitant]
     Active Substance: CLONAZEPAM
  6. DURICEF [Concomitant]
     Active Substance: CEFADROXIL
  7. FIORICET [Concomitant]
     Active Substance: ACETAMINOPHEN\BUTALBITAL\CAFFEINE

REACTIONS (20)
  - Constipation [None]
  - Back pain [None]
  - Agitation [None]
  - Treatment noncompliance [None]
  - Alanine aminotransferase increased [None]
  - Lymphocyte count decreased [None]
  - Memory impairment [None]
  - Paranoia [None]
  - Crying [None]
  - Emotional disorder [None]
  - Hypercalcaemia [None]
  - Aspartate aminotransferase increased [None]
  - Bone pain [None]
  - Disorientation [None]
  - Hypoaesthesia [None]
  - Blood alkaline phosphatase increased [None]
  - Pain [None]
  - Arthralgia [None]
  - Thrombocytopenia [None]
  - Aggression [None]

NARRATIVE: CASE EVENT DATE: 20170130
